FAERS Safety Report 25480738 (Version 3)
Quarter: 2025Q3

REPORT INFORMATION
  Report Type: Spontaneous
  Country: US (occurrence: US)
  Receive Date: 20250625
  Receipt Date: 20250715
  Transmission Date: 20251021
  Serious: Yes (Hospitalization, Other)
  Sender: MERCK SHARP & DOHME LLC
  Company Number: US-009507513-2298719

PATIENT
  Age: 53 Year
  Sex: Female
  Weight: 89.8 kg

DRUGS (20)
  1. SOTATERCEPT [Suspect]
     Active Substance: SOTATERCEPT
     Indication: Pulmonary hypertension
     Dates: start: 202407
  2. SOTATERCEPT [Suspect]
     Active Substance: SOTATERCEPT
     Dosage: TARGET DOSE INJECT 1.3 ML SUBCUTANEOUSLY 1 TIME EVERY 3 WEEKS, DOSING INTERVAL IS EVERY 3 WEEKS.
     Route: 058
     Dates: start: 202406
  3. SOTATERCEPT [Suspect]
     Active Substance: SOTATERCEPT
  4. SOTATERCEPT [Suspect]
     Active Substance: SOTATERCEPT
  5. AMBRISENTAN [Concomitant]
     Active Substance: AMBRISENTAN
     Route: 048
     Dates: start: 2014
  6. AMBRISENTAN [Concomitant]
     Active Substance: AMBRISENTAN
     Dosage: TAKE 1 TABLET (10MG) DAILY
     Route: 048
     Dates: start: 20250331
  7. ALBUTEROL [Concomitant]
     Active Substance: ALBUTEROL
     Indication: Wheezing
     Route: 055
     Dates: start: 20241206
  8. azelastine (0.1 %) [Concomitant]
     Indication: Rhinitis
     Dosage: 137 UG; 1 SPRAY BY NASAL ROUTE 2 (TWO) TIMES DAILY AS NEEDED
     Route: 045
     Dates: start: 20230707
  9. DULOXETINE [Concomitant]
     Active Substance: DULOXETINE
     Dosage: TAKE 1 CAPSULE (60 MG TOTAL) BY MOUTH DAILY, ORAL
     Route: 048
  10. FLONASE [Concomitant]
     Active Substance: FLUTICASONE PROPIONATE
     Indication: Hypersensitivity
     Route: 045
     Dates: start: 20230610
  11. DUONEB [Concomitant]
     Active Substance: ALBUTEROL SULFATE\IPRATROPIUM BROMIDE
     Indication: Wheezing
     Dosage: 0.5 MG-3 MG(2.5 MG BASE)/3 ML NEBULIZER SOLUTION; TAKE 3 MLS BY NEBULIZATION EVERY 6 (SIX) HOURS ...
     Dates: start: 20250306
  12. levalbuterol (XOPENEX HFA) 45 mcg/actuation inhaler [Concomitant]
     Indication: Wheezing
     Dosage: 45 MCG/ACTUATION INHALER; 2 PUFFS EVERY 4 (FOUR) HOURS AS NEEDED
     Dates: start: 20250506
  13. levocetirizine (XYZAL) 5 MG tablet [Concomitant]
     Route: 048
     Dates: start: 20250303
  14. Sildenafil (REVATIO) 20 mg tablet [Concomitant]
     Indication: Pulmonary hypertension
     Route: 048
     Dates: start: 2014
  15. Sildenafil (REVATIO) 20 mg tablet [Concomitant]
     Indication: Pulmonary hypertension
     Route: 048
     Dates: start: 20250217
  16. ORENITRAM [Suspect]
     Active Substance: TREPROSTINIL
     Indication: Pulmonary hypertension
     Dates: start: 20180911
  17. ORENITRAM [Suspect]
     Active Substance: TREPROSTINIL
     Indication: Pulmonary hypertension
     Dates: start: 20250224
  18. ORENITRAM [Suspect]
     Active Substance: TREPROSTINIL
     Indication: Pulmonary hypertension
     Dates: start: 20250224
  19. LASIX [Concomitant]
     Active Substance: FUROSEMIDE
     Indication: Fluid retention
     Route: 048
  20. ondansetron (ZOFRAN-ODT) 8 MG disintegrating tablet [Concomitant]
     Dosage: TAKE 1 TABLET (8 MG TOTAL} BY MOUTH EVERY 8 (EIGHT) HOURS AS NEEDED, ORAL
     Route: 048
     Dates: start: 20240801

REACTIONS (19)
  - Pericardial effusion [Unknown]
  - Umbilical hernia [Recovering/Resolving]
  - Blood chloride increased [Unknown]
  - Dyspnoea exertional [Unknown]
  - Oedema peripheral [Unknown]
  - Hypokalaemia [Recovered/Resolved]
  - Eosinophil count increased [Unknown]
  - Blood glucose increased [Recovered/Resolved]
  - Blood alkaline phosphatase increased [Unknown]
  - Nausea [Unknown]
  - Sinusitis [Recovering/Resolving]
  - Gastrointestinal infection [Recovered/Resolved]
  - Headache [Not Recovered/Not Resolved]
  - Peripheral swelling [Unknown]
  - Dyspnoea [Unknown]
  - Flushing [Not Recovered/Not Resolved]
  - Feeling abnormal [Not Recovered/Not Resolved]
  - Contusion [Unknown]
  - Acute respiratory failure [Recovered/Resolved]

NARRATIVE: CASE EVENT DATE: 20240601
